FAERS Safety Report 8819445 (Version 1)
Quarter: 2012Q4

REPORT INFORMATION
  Report Type: 
  Country: IT (occurrence: IT)
  Receive Date: 20121001
  Receipt Date: 20121001
  Transmission Date: 20130627
  Serious: Yes (Hospitalization)
  Sender: FDA-Public Use
  Company Number: IT-GE HEALTHCARE MEDICAL DIAGNOSTICS-VISP-NO-1209S-0403

PATIENT
  Age: 68 Year
  Sex: Female

DRUGS (4)
  1. VISIPAQUE [Suspect]
     Indication: PRODUCT USED FOR UNKNOWN INDICATION
     Route: 022
     Dates: start: 20120911, end: 20120911
  2. REOPRO [Concomitant]
  3. LIDOCAINE [Concomitant]
  4. EPSOCLAR [Concomitant]

REACTIONS (3)
  - Anxiety [Recovered/Resolved]
  - Psychomotor hyperactivity [Recovered/Resolved]
  - Amnesia [Recovered/Resolved]
